FAERS Safety Report 4869042-6 (Version None)
Quarter: 2005Q4

REPORT INFORMATION
  Report Type: 
  Country: None (occurrence: None)
  Receive Date: 20051219
  Receipt Date: 20051202
  Transmission Date: 20060501
  Serious: Yes (Hospitalization)
  Sender: FDA-Public Use
  Company Number: 2005-02501

PATIENT
  Age: 86 Year
  Sex: Male

DRUGS (6)
  1. IMMUCYST [Suspect]
     Indication: BLADDER CANCER
     Dosage: 81.0 MG
     Route: 043
     Dates: start: 20020101, end: 20020101
  2. ALLYLESTRENOL [Concomitant]
  3. TAMSULOSIN HCL [Concomitant]
  4. OXYBUTYNIN HYDROCHLORIDE [Concomitant]
  5. SENNOSIDE [Concomitant]
  6. ZOPICLONE [Concomitant]

REACTIONS (4)
  - BACK PAIN [None]
  - BONE TUBERCULOSIS [None]
  - BOVINE TUBERCULOSIS [None]
  - TUBERCULOUS ABSCESS CENTRAL NERVOUS SYSTEM [None]
